FAERS Safety Report 16749023 (Version 1)
Quarter: 2019Q3

REPORT INFORMATION
  Report Type: Spontaneous
  Country: GB (occurrence: GB)
  Receive Date: 20190828
  Receipt Date: 20190828
  Transmission Date: 20191005
  Serious: Yes (Disabling)
  Sender: FDA-Public Use
  Company Number: GB-AUROBINDO-AUR-APL-2019-056757

PATIENT

DRUGS (1)
  1. CLARITHROMYCIN. [Suspect]
     Active Substance: CLARITHROMYCIN
     Indication: LOWER RESPIRATORY TRACT INFECTION
     Dosage: 1000 MILLIGRAM, ONCE A DAY
     Route: 048
     Dates: start: 20190603, end: 20190605

REACTIONS (6)
  - Feeding disorder [Unknown]
  - Insomnia [Unknown]
  - Vomiting [Unknown]
  - Diarrhoea [Unknown]
  - Chest pain [Unknown]
  - Heart rate increased [Recovering/Resolving]

NARRATIVE: CASE EVENT DATE: 20190603
